FAERS Safety Report 17616495 (Version 1)
Quarter: 2020Q2

REPORT INFORMATION
  Report Type: Spontaneous
  Country: CA (occurrence: CA)
  Receive Date: 20200402
  Receipt Date: 20200402
  Transmission Date: 20200713
  Serious: Yes (Hospitalization)
  Sender: FDA-Public Use
  Company Number: CA-TEVA-2020-CA-1217108

PATIENT
  Age: 85 Year
  Sex: Male

DRUGS (11)
  1. ESBRIET [Interacting]
     Active Substance: PIRFENIDONE
     Route: 048
  2. ESBRIET [Interacting]
     Active Substance: PIRFENIDONE
     Route: 048
  3. DILAUDID [Interacting]
     Active Substance: HYDROMORPHONE HYDROCHLORIDE
     Indication: INTERVERTEBRAL DISC DISORDER
     Route: 065
  4. ESBRIET [Interacting]
     Active Substance: PIRFENIDONE
     Indication: IDIOPATHIC PULMONARY FIBROSIS
     Route: 048
  5. ESBRIET [Interacting]
     Active Substance: PIRFENIDONE
     Route: 048
  6. WARFARIN [Interacting]
     Active Substance: WARFARIN
     Indication: PRODUCT USED FOR UNKNOWN INDICATION
     Route: 065
  7. DICLOFENAC [Suspect]
     Active Substance: DICLOFENAC
     Indication: PRODUCT USED FOR UNKNOWN INDICATION
     Route: 065
  8. LORAZEPAM. [Interacting]
     Active Substance: LORAZEPAM
     Indication: BACK PAIN
     Route: 065
  9. ESBRIET [Interacting]
     Active Substance: PIRFENIDONE
     Route: 048
  10. TYLENOL WITH CODEINE [Interacting]
     Active Substance: ACETAMINOPHEN\CODEINE PHOSPHATE
     Indication: INTERVERTEBRAL DISC DISORDER
     Route: 065
  11. ESBRIET [Interacting]
     Active Substance: PIRFENIDONE
     Route: 048

REACTIONS (21)
  - Abdominal distension [Unknown]
  - Eye haemorrhage [Unknown]
  - Feeling abnormal [Unknown]
  - Lower respiratory tract infection [Unknown]
  - Retinal detachment [Unknown]
  - Drug interaction [Unknown]
  - Dyspnoea [Unknown]
  - Eructation [Unknown]
  - Fatigue [Unknown]
  - Nasopharyngitis [Unknown]
  - Asthenia [Unknown]
  - Chest pain [Unknown]
  - Decreased appetite [Unknown]
  - Eye pain [Unknown]
  - International normalised ratio decreased [Unknown]
  - Malaise [Unknown]
  - Pneumonia [Unknown]
  - Dizziness [Unknown]
  - Abdominal discomfort [Unknown]
  - Diarrhoea [Unknown]
  - Heart rate increased [Unknown]
